FAERS Safety Report 14321442 (Version 2)
Quarter: 2018Q1

REPORT INFORMATION
  Report Type: Spontaneous
  Country: DE (occurrence: DE)
  Receive Date: 20171223
  Receipt Date: 20180104
  Transmission Date: 20180509
  Serious: Yes (Other)
  Sender: FDA-Public Use
  Company Number: DE-TEVA-2017-DE-835947

PATIENT
  Age: 31 Year
  Sex: Female

DRUGS (3)
  1. HEPARIN [Suspect]
     Active Substance: HEPARIN SODIUM
     Indication: ANTICOAGULANT THERAPY
     Dosage: INITIAL TREATMENT BEFORE TRANSPLANT, REPEATED ADMINISTRATION DURING TRANSPLANT
     Route: 050
  2. HEPARIN [Suspect]
     Active Substance: HEPARIN SODIUM
     Indication: ANTICOAGULANT THERAPY
     Dosage: REPEATED ADMINISTRATION DURING TRANSPLANT
     Route: 050
  3. AGATRA [Concomitant]
     Indication: ANTICOAGULANT THERAPY
     Route: 065

REACTIONS (3)
  - Cardiac disorder [Recovering/Resolving]
  - Coronary artery thrombosis [Recovering/Resolving]
  - Heparin-induced thrombocytopenia [Recovering/Resolving]
